FAERS Safety Report 5500533-0 (Version None)
Quarter: 2007Q4

REPORT INFORMATION
  Report Type: 
  Country: None (occurrence: None)
  Receive Date: 20071029
  Receipt Date: 20071018
  Transmission Date: 20080405
  Serious: Yes (Disabling)
  Sender: FDA-Public Use
  Company Number: US-SP-2003-01739

PATIENT
  Age: 23 Year
  Sex: Female

DRUGS (5)
  1. TUBERSOL [Suspect]
     Indication: MEDICATION ERROR
     Route: 030
     Dates: start: 20030811
  2. TUBERSOL [Suspect]
     Route: 030
     Dates: start: 20030811
  3. TUBERSOL [Suspect]
     Route: 030
     Dates: start: 20030811
  4. TUBERSOL [Suspect]
     Route: 030
     Dates: start: 20030811
  5. TUBERSOL [Suspect]
     Route: 030
     Dates: start: 20030811

REACTIONS (20)
  - AMENORRHOEA [None]
  - ASTHENIA [None]
  - CREPITATIONS [None]
  - DEPRESSION [None]
  - DERMATITIS PSORIASIFORM [None]
  - FATIGUE [None]
  - INCORRECT ROUTE OF DRUG ADMINISTRATION [None]
  - INFLAMMATION [None]
  - INJECTION SITE HAEMATOMA [None]
  - INSOMNIA [None]
  - JOINT RANGE OF MOTION DECREASED [None]
  - LEUKOCYTOSIS [None]
  - MUSCLE SPASMS [None]
  - MYALGIA [None]
  - MYOSITIS [None]
  - NECK INJURY [None]
  - PYREXIA [None]
  - SHOULDER DEFORMITY [None]
  - TYPE III IMMUNE COMPLEX MEDIATED REACTION [None]
  - WRONG DRUG ADMINISTERED [None]
